FAERS Safety Report 17821063 (Version 6)
Quarter: 2020Q4

REPORT INFORMATION
  Report Type: Report from Study
  Country: US (occurrence: US)
  Receive Date: 20200525
  Receipt Date: 20201218
  Transmission Date: 20210113
  Serious: Yes (Other)
  Sender: FDA-Public Use
  Company Number: US-GLAXOSMITHKLINE-US2020TSO011245

PATIENT
  Age: 68 Year
  Sex: Female
  Weight: 63.95 kg

DRUGS (6)
  1. NIRAPARIB [Suspect]
     Active Substance: NIRAPARIB
     Dosage: 200 MG, QD
     Route: 048
  2. NIRAPARIB [Suspect]
     Active Substance: NIRAPARIB
     Dosage: 200 MG, QD
     Route: 048
  3. NIRAPARIB [Suspect]
     Active Substance: NIRAPARIB
     Dosage: 200 MG, QD
     Route: 048
  4. NIRAPARIB [Suspect]
     Active Substance: NIRAPARIB
     Dosage: 300 MG, QD
     Route: 048
     Dates: start: 20200103
  5. NIRAPARIB [Suspect]
     Active Substance: NIRAPARIB
     Indication: OVARIAN CANCER
     Dosage: 300 MG, QD
     Route: 048
  6. NIRAPARIB [Suspect]
     Active Substance: NIRAPARIB
     Dosage: 200 MG, DAILY
     Route: 048
     Dates: start: 20200108

REACTIONS (21)
  - Headache [Unknown]
  - Blood pressure increased [Unknown]
  - Neuropathy peripheral [Recovering/Resolving]
  - Herpes zoster [Unknown]
  - Product dose omission issue [Unknown]
  - Dysphonia [Unknown]
  - Neuralgia [Unknown]
  - Constipation [Unknown]
  - Erythema [Unknown]
  - Throat irritation [Unknown]
  - Pruritus [Unknown]
  - Nausea [Recovering/Resolving]
  - Flatulence [Recovered/Resolved]
  - Dry mouth [Unknown]
  - Nasopharyngitis [Unknown]
  - Photosensitivity reaction [Unknown]
  - Insomnia [Unknown]
  - Rash pruritic [Unknown]
  - Abdominal pain upper [Unknown]
  - Anxiety [Unknown]
  - Oropharyngeal pain [Unknown]

NARRATIVE: CASE EVENT DATE: 202002
